FAERS Safety Report 4673243-X (Version None)
Quarter: 2005Q2

REPORT INFORMATION
  Report Type: 
  Country: None (occurrence: None)
  Receive Date: 20050525
  Receipt Date: 20050517
  Transmission Date: 20051028
  Serious: Yes (Hospitalization)
  Sender: FDA-Public Use
  Company Number: 200511667FR

PATIENT
  Age: 74 Year
  Sex: Male
  Weight: 84 kg

DRUGS (9)
  1. LOVENOX [Suspect]
     Route: 058
     Dates: start: 20040501
  2. PRAXILENE [Suspect]
     Route: 048
  3. KARDEGIC [Suspect]
     Route: 048
  4. TARGOCID [Suspect]
     Route: 042
     Dates: start: 20040422, end: 20040605
  5. ZYLORIC [Suspect]
     Route: 048
     Dates: end: 20040625
  6. TAZOCILLINE [Suspect]
     Route: 042
     Dates: start: 20040601
  7. INSULINE NOS [Concomitant]
     Dates: start: 20010701
  8. GAVISCON [Concomitant]
  9. LEXOMIL [Concomitant]
     Route: 048

REACTIONS (4)
  - AGRANULOCYTOSIS [None]
  - ARTERIOPATHIC DISEASE [None]
  - CHEST X-RAY ABNORMAL [None]
  - NEUTROPENIA [None]
